FAERS Safety Report 18339129 (Version 1)
Quarter: 2020Q4

REPORT INFORMATION
  Report Type: Spontaneous
  Country: IN (occurrence: IN)
  Receive Date: 20201002
  Receipt Date: 20201002
  Transmission Date: 20210113
  Serious: Yes (Hospitalization)
  Sender: FDA-Public Use
  Company Number: IN-MYLANLABS-2020M1083795

PATIENT
  Age: 37 Year
  Sex: Female

DRUGS (4)
  1. IRINOTECAN [Concomitant]
     Active Substance: IRINOTECAN
     Indication: RECTAL CANCER
     Dosage: 200 MILLIGRAM, Q21D AN INTERVAL OF 21 DAYS BETWEEN EACH CYCLE
     Route: 065
     Dates: start: 20190606, end: 20190928
  2. CALCIUM LEUCOVORIN [Concomitant]
     Active Substance: LEUCOVORIN CALCIUM
     Indication: RECTAL CANCER
     Dosage: 400 MILLIGRAM, Q21D AN INTERVAL OF 21 DAYS BETWEEN EACH CYCLE
     Route: 065
     Dates: start: 20190606, end: 20190928
  3. FILGRASTIM [Concomitant]
     Active Substance: FILGRASTIM
     Indication: PRODUCT USED FOR UNKNOWN INDICATION
     Route: 065
  4. FLUOROURACIL. [Suspect]
     Active Substance: FLUOROURACIL
     Indication: RECTAL CANCER
     Dosage: INJ. 5- FU 4500 MG (500 MG IV PUSH FOLLOWED BY 4000 MG DILUTED WITH 2 L NORMAL SALINE....
     Route: 042
     Dates: start: 20190606, end: 20190928

REACTIONS (1)
  - Cerebrovascular accident [Recovering/Resolving]

NARRATIVE: CASE EVENT DATE: 20191001
